FAERS Safety Report 9530203 (Version 1)
Quarter: 2013Q3

REPORT INFORMATION
  Report Type: Report from Study
  Country: US (occurrence: US)
  Receive Date: 20130917
  Receipt Date: 20130917
  Transmission Date: 20140515
  Serious: Yes (Hospitalization)
  Sender: FDA-Public Use
  Company Number: US-ROCHE-1277098

PATIENT
  Sex: Male

DRUGS (10)
  1. LUCENTIS [Suspect]
     Indication: DIABETIC RETINAL OEDEMA
     Dosage: OU (BOTH EYES).
     Route: 050
  2. LUCENTIS [Suspect]
     Indication: DIABETIC RETINOPATHY
  3. DOXAZOSIN [Suspect]
     Indication: PRODUCT USED FOR UNKNOWN INDICATION
     Route: 065
  4. FUROSEMIDE [Suspect]
     Indication: PRODUCT USED FOR UNKNOWN INDICATION
     Dosage: PO BID
     Route: 065
  5. AMLODIPINE [Concomitant]
     Route: 065
  6. ASPIRIN [Concomitant]
     Route: 065
  7. CLONIDINE [Concomitant]
     Route: 065
  8. HUMULIN 70/30 [Concomitant]
     Dosage: 100 UNITS BID
     Route: 065
  9. MINOXIDIL [Concomitant]
     Dosage: PO BID
     Route: 065
  10. MINOXIDIL [Concomitant]
     Route: 065

REACTIONS (6)
  - Fluid retention [Unknown]
  - Hypoxia [Unknown]
  - Localised infection [Unknown]
  - Renal disorder [Unknown]
  - Vitreous floaters [Unknown]
  - Vision blurred [Unknown]
